FAERS Safety Report 6062589-9 (Version None)
Quarter: 2009Q1

REPORT INFORMATION
  Report Type: 
  Country: None (occurrence: None)
  Receive Date: 20090203
  Receipt Date: 20090122
  Transmission Date: 20090719
  Serious: Yes (Other)
  Sender: FDA-Public Use
  Company Number: IT-PFIZER INC-2009160974

PATIENT

DRUGS (1)
  1. DALACIN [Suspect]
     Dosage: 1800 MG, UNK
     Route: 042
     Dates: start: 20090115, end: 20090115

REACTIONS (1)
  - PHARYNGEAL OEDEMA [None]
